FAERS Safety Report 6786363-0 (Version None)
Quarter: 2010Q2

REPORT INFORMATION
  Report Type: 
  Country: None (occurrence: None)
  Receive Date: 20100623
  Receipt Date: 20100615
  Transmission Date: 20101027
  Serious: Yes (Hospitalization)
  Sender: FDA-Public Use
  Company Number: PHHO2010TH06048

PATIENT
  Sex: Male
  Weight: 57 kg

DRUGS (1)
  1. AFINITOR [Suspect]
     Indication: METASTATIC NEOPLASM
     Dosage: 10 MG, OD
     Route: 048
     Dates: start: 20100310, end: 20100324

REACTIONS (7)
  - ACUTE DISSEMINATED ENCEPHALOMYELITIS [None]
  - DEPRESSED LEVEL OF CONSCIOUSNESS [None]
  - LOSS OF CONSCIOUSNESS [None]
  - NEUTROPENIA [None]
  - SPEECH DISORDER DEVELOPMENTAL [None]
  - STOMATITIS [None]
  - STUPOR [None]
